FAERS Safety Report 23022420 (Version 1)
Quarter: 2023Q4

REPORT INFORMATION
  Report Type: Spontaneous
  Country: CN (occurrence: None)
  Receive Date: 20231003
  Receipt Date: 20231003
  Transmission Date: 20240110
  Serious: Yes (Hospitalization, Other)
  Sender: FDA-Public Use
  Company Number: 2023A221682

PATIENT
  Age: 21993 Day
  Sex: Female
  Weight: 55 kg

DRUGS (2)
  1. LYNPARZA [Suspect]
     Active Substance: OLAPARIB
     Indication: Targeted cancer therapy
     Route: 048
     Dates: start: 20230820, end: 20230911
  2. LYNPARZA [Suspect]
     Active Substance: OLAPARIB
     Indication: Targeted cancer therapy
     Route: 048

REACTIONS (2)
  - Myelosuppression [Recovering/Resolving]
  - Asthenia [Recovering/Resolving]

NARRATIVE: CASE EVENT DATE: 20230911
